FAERS Safety Report 11676718 (Version 1)
Quarter: 2015Q4

REPORT INFORMATION
  Report Type: Spontaneous
  Country: CA (occurrence: CA)
  Receive Date: 20151028
  Receipt Date: 20151028
  Transmission Date: 20160304
  Serious: Yes (Disabling, Other)
  Sender: FDA-Public Use
  Company Number: CA-ABBVIE-15P-028-1489919-00

PATIENT
  Age: 64 Year
  Sex: Female
  Weight: 70.37 kg

DRUGS (6)
  1. LIPITOR [Concomitant]
     Active Substance: ATORVASTATIN CALCIUM
     Indication: PRODUCT USED FOR UNKNOWN INDICATION
  2. CELEXA [Suspect]
     Active Substance: CITALOPRAM HYDROBROMIDE
     Indication: DRUG PRESCRIBING ERROR
     Route: 065
  3. LOXAPINE. [Suspect]
     Active Substance: LOXAPINE
     Indication: DRUG PRESCRIBING ERROR
     Route: 065
  4. EPIVAL [Suspect]
     Active Substance: DIVALPROEX SODIUM
     Indication: DRUG PRESCRIBING ERROR
     Route: 065
  5. ABILIFY [Suspect]
     Active Substance: ARIPIPRAZOLE
     Indication: DRUG PRESCRIBING ERROR
     Route: 065
  6. DETROL LA [Concomitant]
     Active Substance: TOLTERODINE TARTRATE
     Indication: PRODUCT USED FOR UNKNOWN INDICATION

REACTIONS (2)
  - Bladder disorder [Not Recovered/Not Resolved]
  - Somnolence [Not Recovered/Not Resolved]
